FAERS Safety Report 6344888-6 (Version None)
Quarter: 2009Q3

REPORT INFORMATION
  Report Type: 
  Country: None (occurrence: None)
  Receive Date: 20090909
  Receipt Date: 20090826
  Transmission Date: 20100115
  Serious: Yes (Other)
  Sender: FDA-Public Use
  Company Number: FR-RANBAXY-2009US-27148

PATIENT

DRUGS (2)
  1. MINOCYCLINE HCL [Suspect]
     Indication: ACNE
     Dosage: 100 MG, QD
     Route: 065
  2. ERYTHROMYCIN [Suspect]
     Indication: ACNE
     Dosage: UNK
     Route: 061

REACTIONS (5)
  - DRUG RASH WITH EOSINOPHILIA AND SYSTEMIC SYMPTOMS [None]
  - EOSINOPHILIA [None]
  - MALAISE [None]
  - OEDEMA [None]
  - RASH PUSTULAR [None]
